FAERS Safety Report 8615552 (Version 2)
Quarter: 2012Q4

REPORT INFORMATION
  Report Type: 
  Country: US (occurrence: US)
  Receive Date: 20120614
  Receipt Date: 20121219
  Transmission Date: 20130627
  Serious: No
  Sender: FDA-Public Use
  Company Number: US-AMGEN-USASP2012020774

PATIENT
  Age: 85 Year
  Sex: Female

DRUGS (4)
  1. PROLIA [Suspect]
     Indication: OSTEOPOROSIS POSTMENOPAUSAL
     Dosage: UNK
     Dates: start: 20120328
  2. HYDROCHLOROTHIAZIDE [Concomitant]
     Dosage: UNK
  3. MULTIVITAMIN [Concomitant]
     Dosage: UNK
  4. CALCIUM WITH VITAMIN D [Concomitant]
     Dosage: UNK

REACTIONS (10)
  - Musculoskeletal stiffness [Not Recovered/Not Resolved]
  - Oedema peripheral [Recovering/Resolving]
  - Toothache [Not Recovered/Not Resolved]
  - Finger deformity [Recovering/Resolving]
  - Urine calcium increased [Recovered/Resolved]
  - Arthralgia [Unknown]
  - Pain in jaw [Unknown]
  - Joint range of motion decreased [Unknown]
  - Tenderness [Unknown]
  - Pain in extremity [Not Recovered/Not Resolved]
